FAERS Safety Report 25552689 (Version 1)
Quarter: 2025Q3

REPORT INFORMATION
  Report Type: Spontaneous
  Country: EU (occurrence: EU)
  Receive Date: 20250715
  Receipt Date: 20250715
  Transmission Date: 20251020
  Serious: Yes (Other)
  Sender: PHARMACOSMOS A/S
  Company Number: None

PATIENT
  Age: 0 Year

DRUGS (3)
  1. IRON ISOMALTOSIDE 1000 [Suspect]
     Active Substance: IRON ISOMALTOSIDE 1000
     Indication: Iron deficiency anaemia
     Dates: start: 20250624, end: 20250624
  2. IRON ISOMALTOSIDE 1000 [Suspect]
     Active Substance: IRON ISOMALTOSIDE 1000
     Indication: Iron deficiency anaemia
     Dates: start: 20250624, end: 20250624
  3. IRON ISOMALTOSIDE 1000 [Suspect]
     Active Substance: IRON ISOMALTOSIDE 1000
     Indication: Iron deficiency anaemia
     Dates: start: 20250624, end: 20250624

REACTIONS (8)
  - Faeces discoloured [Recovered/Resolved]
  - Maternal exposure during breast feeding [Recovered/Resolved]
  - Mucous stools [Recovered/Resolved]
  - Frequent bowel movements [Recovered/Resolved]
  - Abdominal distension [Recovered/Resolved]
  - Faecaloma [Recovered/Resolved]
  - Dyschezia [Recovered/Resolved]
  - Abdominal discomfort [Recovered/Resolved]

NARRATIVE: CASE EVENT DATE: 20250624
